FAERS Safety Report 7539609 (Version 3)
Quarter: 2012Q4

REPORT INFORMATION
  Report Type: 
  Country: AU (occurrence: AU)
  Receive Date: 20100813
  Receipt Date: 20121211
  Transmission Date: 20130627
  Serious: Yes (Hospitalization, Other)
  Sender: FDA-Public Use
  Company Number: PHHY2010AU49964

PATIENT
  Age: 38 None
  Sex: Male

DRUGS (1)
  1. CLOZARIL [Suspect]
     Indication: SCHIZOPHRENIA
     Dosage: 50 mg, UNK
     Dates: start: 20100713, end: 20100729

REACTIONS (28)
  - Suicide attempt [Unknown]
  - Coma scale abnormal [Unknown]
  - Obstructive airways disorder [Unknown]
  - Gastrointestinal disorder [Unknown]
  - Cardiomyopathy [Unknown]
  - Troponin increased [Unknown]
  - Blood creatine phosphokinase increased [Unknown]
  - Tricuspid valve incompetence [Unknown]
  - Systolic dysfunction [Unknown]
  - Analgesic drug level decreased [Unknown]
  - Blood albumin decreased [Unknown]
  - Blood alkaline phosphatase decreased [Unknown]
  - Blood calcium decreased [Unknown]
  - Blood chloride increased [Unknown]
  - Blood phosphorus decreased [Unknown]
  - Blood phosphorus increased [Unknown]
  - Gastroenteritis viral [Unknown]
  - Blood potassium increased [Unknown]
  - Blood urea decreased [Unknown]
  - Red cell distribution width increased [Unknown]
  - Mean platelet volume increased [Unknown]
  - Protein total decreased [Unknown]
  - Red blood cell count decreased [Unknown]
  - Neutrophil count increased [Unknown]
  - Lymphocyte count increased [Unknown]
  - Monocyte count increased [Unknown]
  - Haemoglobin decreased [Unknown]
  - White blood cell count increased [Unknown]
